FAERS Safety Report 4374797-3 (Version None)
Quarter: 2004Q2

REPORT INFORMATION
  Report Type: 
  Country: None (occurrence: None)
  Receive Date: 20040604
  Receipt Date: 20031209
  Transmission Date: 20050107
  Serious: Yes (Death)
  Sender: FDA-Public Use
  Company Number: 200311321BVD

PATIENT
  Age: 70 Year
  Sex: Male

DRUGS (7)
  1. LEVITRA [Suspect]
     Indication: ERECTILE DYSFUNCTION
     Dosage: ORAL
     Route: 048
     Dates: start: 20030601
  2. LEVITRA [Suspect]
     Indication: ERECTILE DYSFUNCTION
     Dosage: ORAL
     Route: 048
     Dates: start: 20030801
  3. LORZAAR [Concomitant]
  4. FUROBETA [Concomitant]
  5. FELODIPIN [Concomitant]
  6. ASPIRIN [Concomitant]
  7. SORTIS [Concomitant]

REACTIONS (1)
  - DEATH [None]
